FAERS Safety Report 13647957 (Version 1)
Quarter: 2017Q2

REPORT INFORMATION
  Report Type: Spontaneous
  Country: US (occurrence: US)
  Receive Date: 20170613
  Receipt Date: 20170613
  Transmission Date: 20170830
  Serious: Yes (Other)
  Sender: FDA-Public Use
  Company Number: US-PFIZER INC-2017253400

PATIENT
  Age: 51 Year
  Sex: Female
  Weight: 61 kg

DRUGS (1)
  1. CHANTIX [Suspect]
     Active Substance: VARENICLINE TARTRATE
     Indication: SMOKING CESSATION THERAPY
     Dosage: STANDARD DOSE, BASED ON HER SMOKING ONE PACK/DAY

REACTIONS (5)
  - Irritability [Recovering/Resolving]
  - Feeling abnormal [Recovering/Resolving]
  - Mood altered [Recovering/Resolving]
  - Tension [Recovering/Resolving]
  - Suicidal behaviour [Unknown]
